FAERS Safety Report 5269605-2 (Version None)
Quarter: 2007Q1

REPORT INFORMATION
  Report Type: 
  Country: None (occurrence: None)
  Receive Date: 20061213
  Receipt Date: 20031015
  Transmission Date: 20070707
  Serious: Yes (Other)
  Sender: FDA-Public Use
  Company Number: 2003UW13307

PATIENT
  Age: 75 Year
  Sex: Female
  Weight: 48.0813 kg

DRUGS (1)
  1. IRESSA [Suspect]
     Indication: LUNG NEOPLASM MALIGNANT
     Dates: start: 20030401

REACTIONS (1)
  - LOCALISED INFECTION [None]
